FAERS Safety Report 9648619 (Version 1)
Quarter: 2013Q4

REPORT INFORMATION
  Report Type: Spontaneous
  Country: US (occurrence: US)
  Receive Date: 20131028
  Receipt Date: 20131028
  Transmission Date: 20140711
  Serious: No
  Sender: FDA-Public Use
  Company Number: US-PFIZER INC-2013307419

PATIENT
  Sex: Male

DRUGS (1)
  1. LYRICA [Suspect]
     Indication: LIMB DISCOMFORT
     Dosage: UNKOWN DOSE, DAILY

REACTIONS (4)
  - Off label use [Unknown]
  - Dysphonia [Unknown]
  - Oropharyngeal pain [Unknown]
  - Mastication disorder [Unknown]
